FAERS Safety Report 9614538 (Version 4)
Quarter: 2013Q4

REPORT INFORMATION
  Report Type: Report from Study
  Country: IN (occurrence: IN)
  Receive Date: 20131011
  Receipt Date: 20131122
  Transmission Date: 20140711
  Serious: Yes (Other)
  Sender: FDA-Public Use
  Company Number: PHHY2013IN077748

PATIENT
  Age: 59 Year
  Sex: Female

DRUGS (2)
  1. ACLASTA [Suspect]
     Indication: OSTEOPOROSIS
     Dosage: 5MG/100ML/YEAR
     Route: 042
     Dates: start: 20130709
  2. CALCIUM [Concomitant]
     Indication: MINERAL SUPPLEMENTATION
     Dosage: UNK UKN, UNK

REACTIONS (4)
  - Rib fracture [Not Recovered/Not Resolved]
  - Breast pain [Unknown]
  - Musculoskeletal pain [Not Recovered/Not Resolved]
  - Drug ineffective [Unknown]
